FAERS Safety Report 5781414-4 (Version None)
Quarter: 2008Q2

REPORT INFORMATION
  Report Type: 
  Country: None (occurrence: None)
  Receive Date: 20080623
  Receipt Date: 20080609
  Transmission Date: 20081010
  Serious: Yes (Other)
  Sender: FDA-Public Use
  Company Number: FR-JNJFOC-20080602399

PATIENT
  Age: 54 Year
  Sex: Female

DRUGS (3)
  1. INFLIXIMAB [Suspect]
     Indication: SPONDYLOARTHROPATHY
     Route: 042
  2. NSAID [Concomitant]
  3. PREDNISONE TAB [Concomitant]

REACTIONS (1)
  - GRANULOMA [None]
